FAERS Safety Report 19679703 (Version 1)
Quarter: 2021Q3

REPORT INFORMATION
  Report Type: Spontaneous
  Country: US (occurrence: US)
  Receive Date: 20210810
  Receipt Date: 20210810
  Transmission Date: 20211014
  Serious: Yes (Death)
  Sender: FDA-Public Use
  Company Number: None

PATIENT
  Age: 67 Year
  Sex: Male

DRUGS (7)
  1. TACROLIMUS 0.5MG [Concomitant]
     Active Substance: TACROLIMUS
  2. ALLOPURINOL 100MG [Concomitant]
     Active Substance: ALLOPURINOL
  3. VALGANCYCLOVIR 450MG [Concomitant]
  4. GABAPENTIN 100MG [Concomitant]
     Active Substance: GABAPENTIN
  5. VEMLIDY [Suspect]
     Active Substance: TENOFOVIR ALAFENAMIDE FUMARATE
     Indication: HEPATITIS B
     Route: 048
     Dates: start: 20190920, end: 20210727
  6. TRADJENTA 5 MG [Concomitant]
  7. FUROSEMIDE 40 MG [Concomitant]
     Active Substance: FUROSEMIDE

REACTIONS (2)
  - Cardiac failure congestive [None]
  - Sepsis [None]

NARRATIVE: CASE EVENT DATE: 20210727
